FAERS Safety Report 18418948 (Version 2)
Quarter: 2020Q4

REPORT INFORMATION
  Report Type: Spontaneous
  Country: US (occurrence: US)
  Receive Date: 20201023
  Receipt Date: 20201201
  Transmission Date: 20210114
  Serious: No
  Sender: FDA-Public Use
  Company Number: US-BIOGEN-2020BI00937864

PATIENT
  Age: 56 Year
  Sex: Female

DRUGS (1)
  1. TECFIDERA [Suspect]
     Active Substance: DIMETHYL FUMARATE
     Indication: MULTIPLE SCLEROSIS
     Route: 065
     Dates: start: 20141230

REACTIONS (10)
  - Urinary tract infection [Unknown]
  - Muscular weakness [Unknown]
  - Arthralgia [Unknown]
  - Toothache [Unknown]
  - Arthritis [Unknown]
  - Peroneal nerve palsy [Unknown]
  - Pneumonia [Unknown]
  - Multiple sclerosis relapse [Recovered/Resolved]
  - Amnesia [Unknown]
  - Gait disturbance [Unknown]

NARRATIVE: CASE EVENT DATE: 20171101
